FAERS Safety Report 15075414 (Version 2)
Quarter: 2023Q4

REPORT INFORMATION
  Report Type: Report from Study
  Country: US (occurrence: US)
  Receive Date: 20180627
  Receipt Date: 20231128
  Transmission Date: 20240110
  Serious: Yes (Other)
  Sender: FDA-Public Use
  Company Number: US-SAOL THERAPEUTICS-2018SAO00537

PATIENT
  Sex: Female

DRUGS (18)
  1. BACLOFEN [Suspect]
     Active Substance: BACLOFEN
     Dosage: 100 ?G, \DAY
     Route: 037
     Dates: start: 20180228
  2. BACLOFEN [Suspect]
     Active Substance: BACLOFEN
     Dosage: 159.6 ?G, \DAY - MAX
     Route: 037
     Dates: start: 20180228
  3. BACLOFEN [Suspect]
     Active Substance: BACLOFEN
     Dosage: 150.2 ?G, \DAY
     Route: 037
     Dates: end: 20180329
  4. BACLOFEN [Suspect]
     Active Substance: BACLOFEN
     Dosage: 209.6 ?G, \DAY - MAX
     Route: 037
     Dates: end: 20180329
  5. BACLOFEN [Suspect]
     Active Substance: BACLOFEN
     Dosage: 200 ?G, \DAY
     Route: 037
     Dates: start: 20180329
  6. BACLOFEN [Suspect]
     Active Substance: BACLOFEN
     Dosage: 319.1 ?G, \DAY - MAX
     Route: 037
     Dates: start: 20180329
  7. BUPIVACAINE [Suspect]
     Active Substance: BUPIVACAINE
     Dosage: 3.0 MG, \DAY
     Route: 037
     Dates: start: 20180228
  8. BUPIVACAINE [Suspect]
     Active Substance: BUPIVACAINE
     Dosage: 4.788 MG, \DAY - MAX
     Route: 037
     Dates: start: 20180228
  9. BUPIVACAINE [Suspect]
     Active Substance: BUPIVACAINE
     Dosage: 4.505 MG, \DAY
     Route: 037
     Dates: end: 20180329
  10. BUPIVACAINE [Suspect]
     Active Substance: BUPIVACAINE
     Dosage: 6.287 MG, \DAY - MAX
     Route: 037
     Dates: end: 20180329
  11. BUPIVACAINE [Suspect]
     Active Substance: BUPIVACAINE
     Dosage: 6.001 MG, \DAY
     Route: 037
     Dates: start: 20180329
  12. BUPIVACAINE [Suspect]
     Active Substance: BUPIVACAINE
     Dosage: 9.573 MG, \DAY - MAX
     Route: 037
     Dates: start: 20180329
  13. MORPHINE [Suspect]
     Active Substance: MORPHINE
     Dosage: 1.5 MG, \DAY
     Route: 037
     Dates: start: 20180228
  14. MORPHINE [Suspect]
     Active Substance: MORPHINE
     Dosage: 2.394 MG, \DAY - MAX
     Route: 037
     Dates: start: 20180228
  15. MORPHINE [Suspect]
     Active Substance: MORPHINE
     Dosage: 2.253 MG, \DAY
     Route: 037
     Dates: end: 20180329
  16. MORPHINE [Suspect]
     Active Substance: MORPHINE
     Dosage: 3.144 MG, \DAY - MAX
     Route: 037
     Dates: end: 20180329
  17. MORPHINE [Suspect]
     Active Substance: MORPHINE
     Dosage: 3.000 MG, \DAY
     Route: 037
     Dates: start: 20180329
  18. MORPHINE [Suspect]
     Active Substance: MORPHINE
     Dosage: 4.786 MG, \DAY - MAX
     Route: 037
     Dates: start: 20180329

REACTIONS (10)
  - Muscle spasticity [Not Recovered/Not Resolved]
  - Pain [Not Recovered/Not Resolved]
  - Decubitus ulcer [Not Recovered/Not Resolved]
  - Gait disturbance [Recovering/Resolving]
  - Rash [Recovered/Resolved]
  - Implant site pain [Not Recovered/Not Resolved]
  - Implant site extravasation [Not Recovered/Not Resolved]
  - Therapeutic response decreased [Recovering/Resolving]
  - Muscle spasms [Recovering/Resolving]
  - Musculoskeletal stiffness [Recovering/Resolving]

NARRATIVE: CASE EVENT DATE: 20180101
